FAERS Safety Report 18004087 (Version 1)
Quarter: 2020Q3

REPORT INFORMATION
  Report Type: Spontaneous
  Country: US (occurrence: US)
  Receive Date: 20200709
  Receipt Date: 20200709
  Transmission Date: 20201103
  Serious: No
  Sender: FDA-Public Use
  Company Number: US-ASTELLAS-2020US017858

PATIENT
  Age: 94 Year
  Sex: Female

DRUGS (3)
  1. MYRBETRIQ [Suspect]
     Active Substance: MIRABEGRON
     Indication: HYPERTONIC BLADDER
     Dosage: 50 MG, THRICE WEEKLY(MONDAY, WEDNESDAY AND SATURDAY)
     Route: 048
     Dates: start: 20200424, end: 20200517
  2. NEXIUM I.V. [Concomitant]
     Active Substance: ESOMEPRAZOLE SODIUM
     Indication: PRODUCT USED FOR UNKNOWN INDICATION
     Dosage: UNK UNK, UNKNOWN FREQ.
     Route: 065
  3. MYRBETRIQ [Suspect]
     Active Substance: MIRABEGRON
     Dosage: 50 MG, THRICE WEEKLY(MONDAY, WEDNESDAY AND SATURDAY)
     Route: 048
     Dates: start: 20200525, end: 20200608

REACTIONS (4)
  - Intentional product misuse [Unknown]
  - Toothache [Not Recovered/Not Resolved]
  - Oral pain [Not Recovered/Not Resolved]
  - Hyperaesthesia teeth [Not Recovered/Not Resolved]

NARRATIVE: CASE EVENT DATE: 20200424
